FAERS Safety Report 6555161-5 (Version None)
Quarter: 2010Q1

REPORT INFORMATION
  Report Type: 
  Country: None (occurrence: None)
  Receive Date: 20100128
  Receipt Date: 20100118
  Transmission Date: 20100710
  Serious: Yes (Other)
  Sender: FDA-Public Use
  Company Number: US-JNJFOC-20100103561

PATIENT
  Sex: Female
  Weight: 69.4 kg

DRUGS (9)
  1. REMICADE [Suspect]
     Indication: CROHN'S DISEASE
     Route: 042
     Dates: start: 20090801
  2. PROZAC [Concomitant]
     Indication: DEPRESSION
  3. ZYPREXA [Concomitant]
     Indication: DEPRESSION
  4. TOPAMAX [Concomitant]
  5. KLONOPIN [Concomitant]
     Indication: ANXIETY
  6. ABILIFY [Concomitant]
  7. ATENOLOL [Concomitant]
  8. NEXIUM [Concomitant]
  9. DILAUDID [Concomitant]

REACTIONS (8)
  - ALOPECIA [None]
  - CARDIAC DISORDER [None]
  - CERVIX CANCER METASTATIC [None]
  - COMPRESSION FRACTURE [None]
  - DYSPNOEA [None]
  - HEPATIC ENZYME INCREASED [None]
  - SPEECH DISORDER [None]
  - WEIGHT INCREASED [None]
